FAERS Safety Report 14252313 (Version 2)
Quarter: 2017Q4

REPORT INFORMATION
  Report Type: Spontaneous
  Country: JP (occurrence: JP)
  Receive Date: 20171205
  Receipt Date: 20171213
  Transmission Date: 20180321
  Serious: Yes (Hospitalization, Other)
  Sender: FDA-Public Use
  Company Number: JP-ABBVIE-17K-087-2182377-00

PATIENT
  Age: 0 Day
  Sex: Female
  Weight: 1.29 kg

DRUGS (1)
  1. HUMIRA [Suspect]
     Active Substance: ADALIMUMAB
     Indication: MATERNAL EXPOSURE TIMING UNSPECIFIED
     Route: 064

REACTIONS (7)
  - Unresponsive to stimuli [Recovered/Resolved]
  - Foetal exposure during pregnancy [Unknown]
  - Neonatal disorder [Unknown]
  - Premature baby [Unknown]
  - Hypotonia [Recovered/Resolved]
  - Bradycardia [Unknown]
  - Pallor [Recovered/Resolved]

NARRATIVE: CASE EVENT DATE: 20170708
